FAERS Safety Report 8282944-6 (Version None)
Quarter: 2012Q2

REPORT INFORMATION
  Report Type: 
  Country: None (occurrence: None)
  Receive Date: 20120413
  Receipt Date: 20120409
  Transmission Date: 20120825
  Serious: Yes (Life-Threatening, Other)
  Sender: FDA-Public Use
  Company Number: US-ASTRAZENECA-2012SE17438

PATIENT
  Age: 70 Year
  Sex: Female
  Weight: 72.6 kg

DRUGS (10)
  1. ATIVAN [Concomitant]
     Dosage: 1 MG Q.6 H.,PRN
     Dates: start: 20120211
  2. COMBIVENT [Concomitant]
     Dosage: PRN
  3. SEROQUEL [Suspect]
     Indication: SCHIZOPHRENIA
     Route: 048
  4. LAMOTRGINE [Concomitant]
  5. VITAMIN D [Concomitant]
  6. SEROQUEL [Suspect]
     Route: 048
  7. QVAR 40 [Concomitant]
  8. BUPROPION HCL [Concomitant]
  9. ASPIRIN [Concomitant]
  10. LEVOTHYROXINE SODIUM [Concomitant]

REACTIONS (4)
  - JAUNDICE [None]
  - ABNORMAL BEHAVIOUR [None]
  - LIVER FUNCTION TEST ABNORMAL [None]
  - DEMENTIA [None]
